FAERS Safety Report 6226337-1 (Version None)
Quarter: 2009Q2

REPORT INFORMATION
  Report Type: 
  Country: None (occurrence: None)
  Receive Date: 20090612
  Receipt Date: 20090602
  Transmission Date: 20091009
  Serious: Yes (Hospitalization)
  Sender: FDA-Public Use
  Company Number: DE-JNJFOC-20090506744

PATIENT
  Age: 38 Year
  Sex: Male
  Weight: 100.3 kg

DRUGS (2)
  1. REMICADE [Suspect]
     Indication: PSORIATIC ARTHROPATHY
     Route: 042
  2. REMICADE [Suspect]
     Indication: PSORIASIS
     Route: 042

REACTIONS (3)
  - CANDIDIASIS [None]
  - HEPATIC CIRRHOSIS [None]
  - JAUNDICE [None]
